FAERS Safety Report 26007828 (Version 2)
Quarter: 2025Q4

REPORT INFORMATION
  Report Type: Spontaneous
  Country: JP (occurrence: JP)
  Receive Date: 20251106
  Receipt Date: 20251117
  Transmission Date: 20260117
  Serious: Yes (Life-Threatening, Other)
  Sender: PFIZER
  Company Number: JP-PFIZER INC-PV202500129838

PATIENT
  Age: 64 Year
  Sex: Male

DRUGS (7)
  1. INFLIXIMAB [Suspect]
     Active Substance: INFLIXIMAB
     Indication: Immune-mediated enterocolitis
     Dosage: UNK
  2. MESALAMINE [Suspect]
     Active Substance: MESALAMINE
     Indication: Immune-mediated enterocolitis
     Dosage: 3600 MG, DAILY
  3. PREDNISOLONE [Suspect]
     Active Substance: PREDNISOLONE
     Indication: Immune-mediated enterocolitis
     Dosage: 30 MG, DAILY
  4. PREDNISOLONE [Suspect]
     Active Substance: PREDNISOLONE
     Dosage: 60 MG,DAILY
  5. PREDNISOLONE [Suspect]
     Active Substance: PREDNISOLONE
     Dosage: 10 MG, DAILY
  6. CYCLOSPORINE [Suspect]
     Active Substance: CYCLOSPORINE
     Indication: Immune-mediated enterocolitis
     Dosage: 125 MG, DAILY
  7. GANCICLOVIR SODIUM [Suspect]
     Active Substance: GANCICLOVIR SODIUM
     Indication: Immune-mediated enterocolitis

REACTIONS (2)
  - Drug ineffective for unapproved indication [Unknown]
  - Off label use [Unknown]
